FAERS Safety Report 17166440 (Version 1)
Quarter: 2019Q4

REPORT INFORMATION
  Report Type: Spontaneous
  Country: JP (occurrence: JP)
  Receive Date: 20191217
  Receipt Date: 20191217
  Transmission Date: 20200122
  Serious: Yes (Death, Other)
  Sender: FDA-Public Use
  Company Number: JP-PFIZER INC-2019542293

PATIENT
  Age: 45 Year
  Sex: Female
  Weight: 49 kg

DRUGS (15)
  1. AVASTIN [Suspect]
     Active Substance: BEVACIZUMAB
     Indication: BREAST CANCER
     Dosage: UNK
     Route: 041
     Dates: start: 201707
  2. AVASTIN [Suspect]
     Active Substance: BEVACIZUMAB
     Dosage: 490 MG, UNK (NOT ADMINISTERED)
     Route: 041
     Dates: start: 20190613
  3. ABEMACICLIB [Concomitant]
     Active Substance: ABEMACICLIB
     Dosage: UNK UNK, UNKNOWN FREQ.
     Route: 065
     Dates: start: 201902, end: 201905
  4. ZANTAC [Concomitant]
     Active Substance: RANITIDINE HYDROCHLORIDE
     Dosage: UNK UNK, UNKNOWN FREQ.
     Route: 065
  5. DEXART [Concomitant]
     Active Substance: DEXAMETHASONE SODIUM PHOSPHATE
     Dosage: 6.6 MG, UNK
     Route: 065
     Dates: start: 20190613, end: 20190613
  6. DEXART [Concomitant]
     Active Substance: DEXAMETHASONE SODIUM PHOSPHATE
     Dosage: 6.6 MG, UNK
     Route: 065
     Dates: start: 20190628, end: 20190628
  7. PACLITAXEL. [Concomitant]
     Active Substance: PACLITAXEL
     Dosage: UNK UNK, UNKNOWN FREQ. (NOT ADMINISTERED)
     Route: 065
     Dates: start: 20190613, end: 20190613
  8. CELECOX [Suspect]
     Active Substance: CELECOXIB
     Indication: PAIN
     Dosage: 200 MG, UNK
     Route: 048
     Dates: start: 20190620, end: 20190701
  9. PACLITAXEL. [Concomitant]
     Active Substance: PACLITAXEL
     Dosage: UNK UNK, UNKNOWN FREQ.
     Route: 065
     Dates: start: 20190628, end: 20190628
  10. PACLITAXEL. [Concomitant]
     Active Substance: PACLITAXEL
     Dosage: UNK UNK, UNKNOWN FREQ.
     Route: 065
     Dates: start: 201707
  11. PRIMPERAN [Concomitant]
     Active Substance: METOCLOPRAMIDE HYDROCHLORIDE
     Dosage: UNK UNK, UNKNOWN FREQ.
     Route: 065
  12. FULVESTRANT. [Concomitant]
     Active Substance: FULVESTRANT
     Dosage: UNK UNK, UNKNOWN FREQ.
     Route: 065
     Dates: start: 201902, end: 201905
  13. POLARAMINE [Concomitant]
     Active Substance: DEXCHLORPHENIRAMINE MALEATE
     Dosage: UNK UNK, UNKNOWN FREQ.
     Route: 065
  14. ALDACTONE A [Concomitant]
     Active Substance: SPIRONOLACTONE
     Dosage: UNK UNK, UNKNOWN FREQ.
     Route: 065
     Dates: start: 20190521
  15. FUROSEMIDE. [Concomitant]
     Active Substance: FUROSEMIDE
     Dosage: UNK UNK, UNKNOWN FREQ.
     Route: 065

REACTIONS (1)
  - Upper gastrointestinal haemorrhage [Fatal]

NARRATIVE: CASE EVENT DATE: 20190630
